FAERS Safety Report 12328351 (Version 3)
Quarter: 2016Q2

REPORT INFORMATION
  Report Type: Spontaneous
  Country: FR (occurrence: FR)
  Receive Date: 20160503
  Receipt Date: 20160606
  Transmission Date: 20160815
  Serious: Yes (Hospitalization, Other)
  Sender: FDA-Public Use
  Company Number: FR-PFIZER INC-2016237656

PATIENT
  Age: 75 Year
  Sex: Female

DRUGS (3)
  1. EFFEXOR [Suspect]
     Active Substance: VENLAFAXINE HYDROCHLORIDE
     Dosage: UNK
     Route: 048
     Dates: start: 20150910, end: 20151027
  2. CLOTIAZEPAM [Suspect]
     Active Substance: CLOTIAZEPAM
     Dosage: UNK
     Route: 048
     Dates: start: 20150910, end: 20151027
  3. PERIACTINE [Suspect]
     Active Substance: CYPROHEPTADINE HYDROCHLORIDE
     Dosage: UNK
     Route: 048
     Dates: start: 20150910, end: 20151027

REACTIONS (8)
  - Disorientation [Unknown]
  - Confusional state [Recovered/Resolved]
  - Phlebitis [Unknown]
  - Neck pain [Unknown]
  - Arthralgia [Unknown]
  - Faecaloma [Unknown]
  - Cholelithiasis [Unknown]
  - Depression [Unknown]

NARRATIVE: CASE EVENT DATE: 20150910
